FAERS Safety Report 11103650 (Version 2)
Quarter: 2015Q2

REPORT INFORMATION
  Report Type: Report from Study
  Country: FR (occurrence: FR)
  Receive Date: 20150511
  Receipt Date: 20150612
  Transmission Date: 20150821
  Serious: Yes (Other)
  Sender: FDA-Public Use
  Company Number: FR-UCBSA-2014019185

PATIENT
  Age: 25 Year
  Sex: Female
  Weight: 53 kg

DRUGS (7)
  1. SODIUM OXYBATE [Suspect]
     Active Substance: SODIUM OXYBATE
     Dosage: 3 G, 2X/DAY (BID)
     Dates: start: 20150421, end: 20150421
  2. SODIUM OXYBATE [Suspect]
     Active Substance: SODIUM OXYBATE
     Dosage: 3 G, 3X/DAY (TID) NIGHTLY
     Dates: start: 2015
  3. MODIODAL [Concomitant]
     Active Substance: MODAFINIL
     Indication: PRODUCT USED FOR UNKNOWN INDICATION
     Dosage: UNKNOWN DOSE
  4. SODIUM OXYBATE [Suspect]
     Active Substance: SODIUM OXYBATE
     Indication: HYPERSOMNIA
     Dosage: 2.25 G, 2X/DAY (BID),NIGHTLY
     Dates: start: 20140702, end: 20140926
  5. SODIUM OXYBATE [Suspect]
     Active Substance: SODIUM OXYBATE
     Indication: OFF LABEL USE
     Dosage: 3 G, 3X/DAY (TID)
     Dates: start: 20141114, end: 2015
  6. AMPHETAMINE [Concomitant]
     Active Substance: AMPHETAMINE
     Indication: PRODUCT USED FOR UNKNOWN INDICATION
     Dosage: UNKNOWN DOSE
  7. RITALIN [Concomitant]
     Active Substance: METHYLPHENIDATE HYDROCHLORIDE
     Indication: PRODUCT USED FOR UNKNOWN INDICATION
     Dosage: UNKNOWN DOSE

REACTIONS (7)
  - Drug tolerance [Recovered/Resolved]
  - Decreased appetite [Recovered/Resolved]
  - Weight decreased [Recovered/Resolved]
  - Depression [Recovered/Resolved]
  - Headache [Recovering/Resolving]
  - Constipation [Recovered/Resolved]
  - Off label use [Unknown]

NARRATIVE: CASE EVENT DATE: 20140702
